FAERS Safety Report 5146272-X (Version None)
Quarter: 2006Q4

REPORT INFORMATION
  Report Type: 
  Country: None (occurrence: None)
  Receive Date: 20061102
  Receipt Date: 20061019
  Transmission Date: 20070319
  Serious: Yes (Other)
  Sender: FDA-Public Use
  Company Number: 2006128952

PATIENT
  Age: 65 Year
  Sex: Female

DRUGS (4)
  1. NORVASC [Suspect]
     Dates: start: 20020101
  2. KARVEA (IRBESARTAN) [Concomitant]
  3. WARFARIN SODIUM [Concomitant]
  4. AMIODARONE HCL [Concomitant]

REACTIONS (2)
  - ABNORMAL DREAMS [None]
  - LOWER LIMB FRACTURE [None]
